FAERS Safety Report 26052000 (Version 1)
Quarter: 2025Q4

REPORT INFORMATION
  Report Type: Spontaneous
  Country: EU (occurrence: EU)
  Receive Date: 20251117
  Receipt Date: 20251117
  Transmission Date: 20260117
  Serious: Yes (Other)
  Sender: BRISTOL-MYERS SQUIBB COMPANY
  Company Number: EU-STADA-01477263

PATIENT
  Age: 7 Decade

DRUGS (2)
  1. LENALIDOMIDE [Suspect]
     Active Substance: LENALIDOMIDE
     Indication: Diffuse large B-cell lymphoma
     Dosage: 5 MG
     Dates: start: 202206, end: 202311
  2. TAFASITAMAB [Suspect]
     Active Substance: TAFASITAMAB
     Indication: Diffuse large B-cell lymphoma

REACTIONS (4)
  - Chronic kidney disease [Unknown]
  - Leukopenia [Unknown]
  - Pneumonia [Recovered/Resolved]
  - Thrombocytopenia [Unknown]
